FAERS Safety Report 15961472 (Version 1)
Quarter: 2019Q1

REPORT INFORMATION
  Report Type: Spontaneous
  Country: US (occurrence: US)
  Receive Date: 20190214
  Receipt Date: 20190214
  Transmission Date: 20190417
  Serious: Yes (Other)
  Sender: FDA-Public Use
  Company Number: US-COOPERSURGICAL, INC.-US-2019CPS000305

PATIENT

DRUGS (3)
  1. TRAZODONE [Concomitant]
     Active Substance: TRAZODONE HYDROCHLORIDE
     Indication: SLEEP DISORDER THERAPY
     Dosage: 50 MG, UNK
  2. ESCITALOPRAM [Concomitant]
     Active Substance: ESCITALOPRAM OXALATE
     Indication: DEPRESSION
  3. PARAGARD T 380A [Suspect]
     Active Substance: COPPER
     Indication: CONTRACEPTION
     Dosage: UNK
     Route: 015
     Dates: start: 201107, end: 20181212

REACTIONS (7)
  - Device breakage [Unknown]
  - Dysmenorrhoea [Unknown]
  - Foreign body in reproductive tract [Unknown]
  - Uterine leiomyoma [Unknown]
  - Complication of device removal [Unknown]
  - Embedded device [Unknown]
  - Pain [Unknown]

NARRATIVE: CASE EVENT DATE: 20181212
